FAERS Safety Report 8092955-1 (Version None)
Quarter: 2012Q1

REPORT INFORMATION
  Report Type: 
  Country: None (occurrence: None)
  Receive Date: 20120131
  Receipt Date: 20120125
  Transmission Date: 20120608
  Serious: Yes (Other)
  Sender: FDA-Public Use
  Company Number: US-AMGEN-USASP2012005271

PATIENT
  Sex: Female

DRUGS (1)
  1. ENBREL [Suspect]
     Indication: RHEUMATOID ARTHRITIS
     Dosage: 25 MG, 2 TIMES/WK
     Dates: start: 20040101

REACTIONS (8)
  - INFLUENZA LIKE ILLNESS [None]
  - ANGIOPLASTY [None]
  - STRESS [None]
  - PAIN [None]
  - ARTHRITIS [None]
  - CARDIAC DISORDER [None]
  - HEADACHE [None]
  - BLOOD PRESSURE ABNORMAL [None]
